FAERS Safety Report 15405650 (Version 1)
Quarter: 2018Q3

REPORT INFORMATION
  Report Type: Spontaneous
  Country: US (occurrence: US)
  Receive Date: 20180920
  Receipt Date: 20180920
  Transmission Date: 20181010
  Serious: No
  Sender: FDA-Public Use
  Company Number: US-SHIRE-US201835932

PATIENT
  Sex: Female

DRUGS (1)
  1. NATPARA (PARATHYROID HORMONE) [Suspect]
     Active Substance: PARATHYROID HORMONE
     Indication: PRODUCT USED FOR UNKNOWN INDICATION
     Dosage: UNK
     Route: 065
     Dates: start: 2018

REACTIONS (8)
  - Hypoaesthesia [Unknown]
  - Hypoaesthesia oral [Unknown]
  - Malaise [Unknown]
  - Blood calcium decreased [Unknown]
  - Product expiration date issue [Unknown]
  - Wrong technique in product usage process [Unknown]
  - Aphasia [Unknown]
  - Paraesthesia [Unknown]
